FAERS Safety Report 14352427 (Version 1)
Quarter: 2018Q1

REPORT INFORMATION
  Report Type: Spontaneous
  Country: US (occurrence: US)
  Receive Date: 20180104
  Receipt Date: 20180104
  Transmission Date: 20180509
  Serious: Yes (Hospitalization)
  Sender: FDA-Public Use
  Company Number: US-SA-2017SA213013

PATIENT
  Age: 61 Year
  Sex: Female

DRUGS (2)
  1. DUPIXENT [Suspect]
     Active Substance: DUPILUMAB
     Indication: DERMATITIS ATOPIC
     Route: 058
     Dates: start: 20171008
  2. DUPIXENT [Suspect]
     Active Substance: DUPILUMAB
     Indication: DERMATITIS ATOPIC
     Route: 058
     Dates: start: 20171008

REACTIONS (8)
  - Erythema [Unknown]
  - Skin irritation [Unknown]
  - Hypoaesthesia [Unknown]
  - Fall [Unknown]
  - Skin exfoliation [Unknown]
  - Carpal tunnel syndrome [Unknown]
  - Head injury [Unknown]
  - Rash [Unknown]

NARRATIVE: CASE EVENT DATE: 2017
